FAERS Safety Report 9547951 (Version 1)
Quarter: 2013Q3

REPORT INFORMATION
  Report Type: Spontaneous
  Country: US (occurrence: None)
  Receive Date: 20130923
  Receipt Date: 20130923
  Transmission Date: 20140515
  Serious: Yes (Hospitalization)
  Sender: FDA-Public Use
  Company Number: None

PATIENT
  Age: 11 Year
  Sex: Male
  Weight: 48 kg

DRUGS (11)
  1. GAMMAGARD LIQUID [Suspect]
     Indication: DRUG THERAPY
     Dosage: 47.5 Q
     Dates: start: 20130912
  2. SENA [Concomitant]
  3. ASPIRIN [Concomitant]
  4. ALBUTEROL [Concomitant]
  5. CETIRIZINE [Concomitant]
  6. DILTIAZEM [Concomitant]
  7. FERROUS SULFATE [Concomitant]
  8. LISINOPRIL [Concomitant]
  9. MONTELUKAST [Concomitant]
  10. RANIADINE [Concomitant]
  11. ISOSORBIDE [Concomitant]

REACTIONS (1)
  - Meningitis aseptic [None]
